FAERS Safety Report 6753119-4 (Version None)
Quarter: 2010Q2

REPORT INFORMATION
  Report Type: 
  Country: None (occurrence: None)
  Receive Date: 20100603
  Receipt Date: 20100524
  Transmission Date: 20101027
  Serious: Yes (Death)
  Sender: FDA-Public Use
  Company Number: US-PFIZER INC-2010068432

PATIENT
  Sex: Male

DRUGS (3)
  1. NORVASC [Suspect]
     Dosage: UNK
  2. NEURONTIN [Suspect]
     Dosage: UNK
  3. GEODON [Suspect]
     Indication: AGITATION
     Dosage: 10 MG, UNK
     Route: 030

REACTIONS (1)
  - DEATH [None]
